FAERS Safety Report 18226245 (Version 3)
Quarter: 2020Q4

REPORT INFORMATION
  Report Type: Report from Study
  Country: FR (occurrence: FR)
  Receive Date: 20200903
  Receipt Date: 20201210
  Transmission Date: 20210113
  Serious: Yes (Death, Hospitalization, Other)
  Sender: FDA-Public Use
  Company Number: FR-BRISTOL-MYERS SQUIBB COMPANY-BMS-2020-067625

PATIENT
  Age: 73 Year
  Sex: Male

DRUGS (12)
  1. IPILIMUMAB [Suspect]
     Active Substance: IPILIMUMAB
     Indication: NON-SMALL CELL LUNG CANCER
     Dosage: 85 MILLIGRAM
     Route: 042
     Dates: start: 20190626, end: 20200731
  2. PROPOFOL. [Concomitant]
     Active Substance: PROPOFOL
     Indication: PRODUCT USED FOR UNKNOWN INDICATION
     Dosage: UNK
     Route: 065
     Dates: end: 20200820
  3. SIMVASTATINE [Concomitant]
     Active Substance: SIMVASTATIN
     Indication: ARTERIAL DISORDER
     Dosage: 20 MILLIGRAM
     Route: 048
  4. INIPOMP [Concomitant]
     Active Substance: PANTOPRAZOLE SODIUM
     Indication: PROPHYLAXIS AGAINST GASTROINTESTINAL ULCER
     Dosage: 20 MILLIGRAM
     Route: 048
  5. NIVOLUMAB [Suspect]
     Active Substance: NIVOLUMAB
     Indication: NON-SMALL CELL LUNG CANCER
     Dosage: 240 MILLIGRAM
     Route: 042
     Dates: start: 20190626, end: 20200731
  6. PRODILANTIN [Concomitant]
     Active Substance: FOSPHENYTOIN SODIUM
     Indication: PRODUCT USED FOR UNKNOWN INDICATION
     Dosage: UNK
     Route: 065
  7. KEPPRA [Concomitant]
     Active Substance: LEVETIRACETAM
     Indication: PRODUCT USED FOR UNKNOWN INDICATION
     Dosage: UNK
     Route: 065
  8. URSOLVAN [Concomitant]
     Active Substance: URSODIOL
     Indication: PRODUCT USED FOR UNKNOWN INDICATION
     Dosage: 200 MILLIGRAM
     Route: 048
  9. PARACETAMOL [Concomitant]
     Active Substance: ACETAMINOPHEN
     Indication: PAIN
     Dosage: UNK, PRN
     Route: 048
  10. ASPIRINE [Concomitant]
     Active Substance: ASPIRIN
     Indication: ARTERIAL DISORDER
     Dosage: 100 MILLIGRAM
     Route: 048
  11. RIVOTRIL [Concomitant]
     Active Substance: CLONAZEPAM
     Indication: SEIZURE
     Dosage: 1 MILLIGRAM
     Route: 065
     Dates: start: 20200817
  12. ADENURIC [Concomitant]
     Active Substance: FEBUXOSTAT
     Indication: HYPERURICAEMIA
     Dosage: 80 MILLIGRAM
     Route: 048

REACTIONS (1)
  - Encephalitis [Fatal]

NARRATIVE: CASE EVENT DATE: 20200813
